FAERS Safety Report 15480569 (Version 3)
Quarter: 2018Q4

REPORT INFORMATION
  Report Type: Report from Study
  Country: None (occurrence: DE)
  Receive Date: 20181010
  Receipt Date: 20181106
  Transmission Date: 20190205
  Serious: Yes (Hospitalization, Other)
  Sender: FDA-Public Use
  Company Number: DE-ABBVIE-18S-062-2512303-00

PATIENT
  Sex: Male

DRUGS (2)
  1. DUODOPA [Suspect]
     Active Substance: CARBIDOPA\LEVODOPA
     Indication: PARKINSON^S DISEASE
     Dosage: MD 6.0 ML; CRD 4.5 ML/HR; CRN 2.7 ML/HR; ED 1.5 ML
     Route: 050
     Dates: start: 20180608, end: 2018
  2. DUODOPA [Suspect]
     Active Substance: CARBIDOPA\LEVODOPA
     Dosage: MD 6.0 ML; CRD 4.5 ML/HR; CRN 2.7 ML/HR; ED 1.5 ML
     Route: 050
     Dates: start: 2018

REACTIONS (3)
  - Constipation [Not Recovered/Not Resolved]
  - Sepsis [Not Recovered/Not Resolved]
  - Medical induction of coma [Recovered/Resolved]

NARRATIVE: CASE EVENT DATE: 2018
